FAERS Safety Report 16375349 (Version 1)
Quarter: 2019Q2

REPORT INFORMATION
  Report Type: Spontaneous
  Country: US (occurrence: US)
  Receive Date: 20190531
  Receipt Date: 20190531
  Transmission Date: 20190711
  Serious: Yes (Hospitalization, Other)
  Sender: FDA-Public Use
  Company Number: US-ASTELLAS-2019US022649

PATIENT
  Age: 45 Year
  Sex: Male

DRUGS (2)
  1. MYCOPHENOLIC ACID. [Concomitant]
     Active Substance: MYCOPHENOLIC ACID
     Indication: RENAL AND PANCREAS TRANSPLANT
     Dosage: UNK UNK, UNKNOWN FREQ.
     Route: 065
  2. TACROLIMUS. [Suspect]
     Active Substance: TACROLIMUS
     Indication: RENAL AND PANCREAS TRANSPLANT
     Dosage: UNK UNK, UNKNOWN FREQ.
     Route: 065

REACTIONS (9)
  - Enterovesical fistula [Recovered/Resolved]
  - Urethritis [Unknown]
  - Pancreatic leak [Unknown]
  - Pancreatitis relapsing [Unknown]
  - Haematuria [Unknown]
  - Abdominal pain lower [Unknown]
  - Pyuria [Unknown]
  - Product use in unapproved indication [Unknown]
  - Klebsiella infection [Unknown]
